FAERS Safety Report 9953595 (Version 2)
Quarter: 2014Q1

REPORT INFORMATION
  Report Type: Report from Study
  Country: US (occurrence: US)
  Receive Date: 20140304
  Receipt Date: 20140304
  Transmission Date: 20141002
  Serious: No
  Sender: FDA-Public Use
  Company Number: US-ABBVIE-13P-163-1038208-00

PATIENT
  Age: 19 Year
  Sex: Female
  Weight: 60.38 kg

DRUGS (3)
  1. HUMIRA [Suspect]
     Indication: RHEUMATOID ARTHRITIS
     Route: 058
     Dates: start: 20121130, end: 20130111
  2. HUMIRA [Suspect]
     Dates: start: 201301
  3. GILDESS FE [Concomitant]
     Indication: ORAL CONTRACEPTION

REACTIONS (3)
  - Joint swelling [Not Recovered/Not Resolved]
  - Headache [Unknown]
  - Drug ineffective [Unknown]
